FAERS Safety Report 12208396 (Version 1)
Quarter: 2016Q1

REPORT INFORMATION
  Report Type: Spontaneous
  Country: DE (occurrence: DE)
  Receive Date: 20160324
  Receipt Date: 20160324
  Transmission Date: 20160526
  Serious: Yes (Hospitalization, Congenital Anomaly)
  Sender: FDA-Public Use
  Company Number: DE-TEVA-644628GER

PATIENT
  Age: 0 Day
  Sex: Male

DRUGS (2)
  1. CITALOPRAM [Suspect]
     Active Substance: CITALOPRAM HYDROBROMIDE
     Dosage: 40 MILLIGRAM DAILY;
     Route: 064
  2. CITALOPRAM [Suspect]
     Active Substance: CITALOPRAM HYDROBROMIDE
     Indication: DEPRESSION
     Route: 063
     Dates: end: 20160123

REACTIONS (8)
  - Agitation [Unknown]
  - Apnoea [Recovering/Resolving]
  - Exposure during pregnancy [Unknown]
  - Head circumference abnormal [Unknown]
  - Microcephaly [Unknown]
  - Opisthotonus [Unknown]
  - Oxygen saturation decreased [Recovering/Resolving]
  - Exposure during breast feeding [Unknown]

NARRATIVE: CASE EVENT DATE: 20151228
